FAERS Safety Report 10265458 (Version 4)
Quarter: 2014Q3

REPORT INFORMATION
  Report Type: Spontaneous
  Country: US (occurrence: None)
  Receive Date: 20140624
  Receipt Date: 20140724
  Transmission Date: 20150326
  Serious: Yes (Other)
  Sender: FDA-Public Use
  Company Number: ADR-2014-01068

PATIENT
  Age: 39 Year
  Sex: Female

DRUGS (2)
  1. CLONIDINE. [Suspect]
     Active Substance: CLONIDINE
  2. LIORESAL [Suspect]
     Active Substance: BACLOFEN
     Indication: MUSCLE SPASTICITY

REACTIONS (3)
  - Paralysis [None]
  - Catheter site inflammation [None]
  - Myositis [None]

NARRATIVE: CASE EVENT DATE: 20140514
